FAERS Safety Report 23279195 (Version 1)
Quarter: 2023Q4

REPORT INFORMATION
  Report Type: Spontaneous
  Country: US (occurrence: US)
  Receive Date: 20231209
  Receipt Date: 20231209
  Transmission Date: 20240110
  Serious: No
  Sender: FDA-Public Use
  Company Number: US-BRISTOL-MYERS SQUIBB COMPANY-2023-177583

PATIENT
  Age: 37 Year
  Sex: Female
  Weight: 66.2 kg

DRUGS (3)
  1. LENALIDOMIDE [Suspect]
     Active Substance: LENALIDOMIDE
     Indication: Mantle cell lymphoma
     Dosage: DOSE : 20 MG | 5 MG;     FREQ : FOR 21 DAYS, OFF 7 DAYS
     Route: 048
     Dates: start: 20231121
  2. RITUXAN [Concomitant]
     Active Substance: RITUXIMAB
     Indication: Product used for unknown indication
  3. VENETOCLAX [Concomitant]
     Active Substance: VENETOCLAX
     Indication: Product used for unknown indication

REACTIONS (2)
  - Rash pruritic [Unknown]
  - Off label use [Unknown]

NARRATIVE: CASE EVENT DATE: 20231101
